FAERS Safety Report 21647383 (Version 1)
Quarter: 2022Q4

REPORT INFORMATION
  Report Type: Spontaneous
  Country: CN (occurrence: CN)
  Receive Date: 20221128
  Receipt Date: 20221128
  Transmission Date: 20230113
  Serious: Yes (Other)
  Sender: FDA-Public Use
  Company Number: None

PATIENT
  Age: 28 Year
  Sex: Female
  Weight: 54 kg

DRUGS (4)
  1. CYCLOPHOSPHAMIDE [Suspect]
     Active Substance: CYCLOPHOSPHAMIDE
     Indication: Chemotherapy
     Dosage: 800 MG, ONCE DAILY, DOSAGE FORM: POWDER FOR INJECTION, DILUTED WITH 250 ML 0.9% SODIUM CHLORIDE
     Route: 041
     Dates: start: 20220818, end: 20220818
  2. SODIUM CHLORIDE [Suspect]
     Active Substance: SODIUM CHLORIDE
     Indication: Vehicle solution use
     Dosage: 250 ML, ONCE DAILY, USED TO DILUTE 800 MG CYCLOPHOSPHAMIDE
     Route: 041
     Dates: start: 20220818, end: 20220818
  3. SODIUM CHLORIDE [Suspect]
     Active Substance: SODIUM CHLORIDE
     Dosage: 250 ML, ONCE DAILY, USED TO DILUTE 140 MG EPIRUBICIN HYDROCHLORIDE
     Route: 065
     Dates: start: 20220818, end: 20220818
  4. EPIRUBICIN HYDROCHLORIDE [Suspect]
     Active Substance: EPIRUBICIN HYDROCHLORIDE
     Indication: Chemotherapy
     Dosage: 140 MG, ONCE DAILY, DILUTED WITH 250 ML OF 0.9% SODIUM CHLORIDE
     Route: 041
     Dates: start: 20220818, end: 20220818

REACTIONS (3)
  - White blood cell count decreased [Recovering/Resolving]
  - Mouth ulceration [Recovering/Resolving]
  - Fatigue [Recovering/Resolving]

NARRATIVE: CASE EVENT DATE: 20220819
